FAERS Safety Report 12441728 (Version 1)
Quarter: 2016Q2

REPORT INFORMATION
  Report Type: Spontaneous
  Country: US (occurrence: None)
  Receive Date: 20160606
  Receipt Date: 20160606
  Transmission Date: 20160815
  Serious: Yes (Disabling)
  Sender: FDA-Public Use
  Company Number: None

PATIENT
  Age: 52 Year
  Sex: Female
  Weight: 87.54 kg

DRUGS (1)
  1. REMICADE [Suspect]
     Active Substance: INFLIXIMAB
     Indication: SPONDYLOARTHROPATHY
     Dosage: 5 MG/KG Q8WKS IV
     Route: 042
     Dates: start: 20151014, end: 20160204

REACTIONS (4)
  - Optic neuritis [None]
  - Pain [None]
  - Photosensitivity reaction [None]
  - Blindness unilateral [None]

NARRATIVE: CASE EVENT DATE: 20160217
